FAERS Safety Report 13844991 (Version 1)
Quarter: 2017Q3

REPORT INFORMATION
  Report Type: Spontaneous
  Country: DE (occurrence: DE)
  Receive Date: 20170808
  Receipt Date: 20170808
  Transmission Date: 20171127
  Serious: Yes (Hospitalization, Other)
  Sender: FDA-Public Use
  Company Number: DE-AUROBINDO-AUR-APL-2012-04481

PATIENT

DRUGS (1)
  1. OLANZAPIN AUROBIDO TABLETTEN 20MG [Suspect]
     Active Substance: OLANZAPINE
     Indication: SCHIZOPHRENIA
     Dosage: 20 MG,DAILY,
     Route: 065

REACTIONS (3)
  - Obsessive-compulsive disorder [Recovered/Resolved]
  - Weight increased [Recovered/Resolved]
  - Dyslipidaemia [Recovered/Resolved]
